FAERS Safety Report 21973518 (Version 5)
Quarter: 2024Q3

REPORT INFORMATION
  Report Type: Spontaneous
  Country: US (occurrence: US)
  Receive Date: 20230209
  Receipt Date: 20240813
  Transmission Date: 20241017
  Serious: No
  Sender: PFIZER
  Company Number: US-PFIZER INC-PV202300024151

PATIENT
  Age: 78 Year
  Sex: Female

DRUGS (1)
  1. IBRANCE [Suspect]
     Active Substance: PALBOCICLIB
     Dosage: 100 MG, CYCLIC (1 TABLET ONCE A DAY FOR 21 DAYS, 7 DAYS OFF)

REACTIONS (3)
  - Confusional state [Unknown]
  - Nasopharyngitis [Unknown]
  - Full blood count decreased [Unknown]
